FAERS Safety Report 14139839 (Version 2)
Quarter: 2017Q4

REPORT INFORMATION
  Report Type: Spontaneous
  Country: US (occurrence: US)
  Receive Date: 20171030
  Receipt Date: 20171121
  Transmission Date: 20180321
  Serious: Yes (Death, Other)
  Sender: FDA-Public Use
  Company Number: US-BRISTOL-MYERS SQUIBB COMPANY-BMS-2017-096809

PATIENT
  Sex: Female
  Weight: 94.24 kg

DRUGS (1)
  1. ELIQUIS [Suspect]
     Active Substance: APIXABAN
     Indication: PRODUCT USED FOR UNKNOWN INDICATION
     Dosage: 5 MG, BID
     Route: 048
     Dates: start: 201702

REACTIONS (6)
  - Syncope [Unknown]
  - Hypoxia [Unknown]
  - Loss of consciousness [Unknown]
  - Pulse absent [Unknown]
  - Death [Fatal]
  - Bradycardia [Unknown]
